FAERS Safety Report 18112703 (Version 1)
Quarter: 2020Q3

REPORT INFORMATION
  Report Type: Spontaneous
  Country: US (occurrence: US)
  Receive Date: 20200804
  Receipt Date: 20200804
  Transmission Date: 20201103
  Serious: Yes (Hospitalization)
  Sender: FDA-Public Use
  Company Number: None

PATIENT
  Age: 26 Year
  Sex: Male

DRUGS (1)
  1. GLEEVEC [Suspect]
     Active Substance: IMATINIB MESYLATE
     Indication: GRAFT VERSUS HOST DISEASE
     Route: 048
     Dates: start: 202002

REACTIONS (3)
  - Vomiting [None]
  - Hyperhidrosis [None]
  - Dehydration [None]

NARRATIVE: CASE EVENT DATE: 20200713
